FAERS Safety Report 9531778 (Version 1)
Quarter: 2013Q3

REPORT INFORMATION
  Report Type: Spontaneous
  Country: US (occurrence: US)
  Receive Date: 20130918
  Receipt Date: 20130918
  Transmission Date: 20140515
  Serious: No
  Sender: FDA-Public Use
  Company Number: US-PFIZER INC-2013267304

PATIENT
  Age: 64 Year
  Sex: Male
  Weight: 100.68 kg

DRUGS (1)
  1. DEPO-MEDROL [Suspect]
     Dosage: 60 MG, UNK
     Route: 042
     Dates: start: 20130916, end: 20130916

REACTIONS (2)
  - Incorrect route of drug administration [Unknown]
  - Blood glucose increased [Unknown]
